FAERS Safety Report 9190601 (Version 2)
Quarter: 2013Q2

REPORT INFORMATION
  Report Type: Spontaneous
  Country: IN (occurrence: IN)
  Receive Date: 20130326
  Receipt Date: 20130401
  Transmission Date: 20140414
  Serious: Yes (Disabling, Other)
  Sender: FDA-Public Use
  Company Number: IN-SANOFI-AVENTIS-2013SA028785

PATIENT
  Sex: Female

DRUGS (2)
  1. PENTAZOCINE HYDROCHLORIDE [Suspect]
     Indication: DRUG ABUSE
     Dosage: 3-4 TIMES DAILY
     Route: 030
  2. PROMETHAZINE [Suspect]
     Indication: DRUG ABUSE
     Dosage: 3-4 TIMES DAILY
     Route: 030

REACTIONS (6)
  - Muscle contracture [Unknown]
  - Drug abuser [Unknown]
  - Hypokinesia [Unknown]
  - Limb deformity [Unknown]
  - Shoulder deformity [Unknown]
  - Drug abuse [Unknown]
